FAERS Safety Report 10567828 (Version 1)
Quarter: 2014Q4

REPORT INFORMATION
  Report Type: Spontaneous
  Country: IT (occurrence: None)
  Receive Date: 20141104
  Receipt Date: 20141104
  Transmission Date: 20150529
  Serious: Yes (Death, Hospitalization)
  Sender: FDA-Public Use
  Company Number: NSR_01660_2014

PATIENT
  Age: 39 Year
  Sex: Male

DRUGS (1)
  1. PROPANOLOL [Suspect]
     Active Substance: PROPRANOLOL HYDROCHLORIDE
     Indication: ATRIAL FIBRILLATION
     Route: 042

REACTIONS (9)
  - Supraventricular tachycardia [None]
  - Cardio-respiratory arrest [None]
  - Ejection fraction decreased [None]
  - Therapeutic response decreased [None]
  - Dyspnoea [None]
  - Anuria [None]
  - Cardiogenic shock [None]
  - Coma [None]
  - Multi-organ failure [None]
